FAERS Safety Report 22057286 (Version 1)
Quarter: 2023Q1

REPORT INFORMATION
  Report Type: Spontaneous
  Country: DE (occurrence: DE)
  Receive Date: 20230303
  Receipt Date: 20230303
  Transmission Date: 20230418
  Serious: No
  Sender: FDA-Public Use
  Company Number: DE-PADAGIS-2023PAD00245

PATIENT

DRUGS (5)
  1. PERMETHRIN [Suspect]
     Active Substance: PERMETHRIN
     Indication: Acarodermatitis
     Dosage: UNK
     Route: 065
  2. PERMETHRIN [Suspect]
     Active Substance: PERMETHRIN
     Dosage: UNK, (ESCALATION THERAPY, TWICE, DAY 0 AND 10)
     Route: 065
  3. IVERMECTIN [Suspect]
     Active Substance: IVERMECTIN
     Indication: Acarodermatitis
     Dosage: UNK, (ESCALATION THERAPY, TWICE, DAY 0 AND 10)
     Route: 065
  4. IVERMECTIN [Suspect]
     Active Substance: IVERMECTIN
     Dosage: UNK
     Route: 065
  5. BENZYL BENZOATE [Suspect]
     Active Substance: BENZYL BENZOATE
     Indication: Acarodermatitis
     Dosage: UNK
     Route: 065

REACTIONS (1)
  - Drug resistance [Unknown]
